FAERS Safety Report 10227278 (Version 1)
Quarter: 2014Q2

REPORT INFORMATION
  Report Type: Report from Study
  Country: US (occurrence: US)
  Receive Date: 20140610
  Receipt Date: 20140610
  Transmission Date: 20141212
  Serious: Yes (Other)
  Sender: FDA-Public Use
  Company Number: US-SA-2014SA072996

PATIENT
  Age: 74 Year
  Sex: Female

DRUGS (2)
  1. LANTUS [Suspect]
     Indication: DIABETES MELLITUS
     Dosage: DOSE:50 UNIT(S)
     Route: 065
     Dates: start: 2004
  2. HUMALOG [Concomitant]
     Dosage: 10 UNITS WITH BREAKFAST, 14 UNITS WITH LUNCH AND 22 UNITS WITH DINNER.

REACTIONS (1)
  - Renal failure chronic [Unknown]
